FAERS Safety Report 11294264 (Version 1)
Quarter: 2015Q3

REPORT INFORMATION
  Report Type: Spontaneous
  Country: US (occurrence: US)
  Receive Date: 20150722
  Receipt Date: 20150722
  Transmission Date: 20151125
  Serious: No
  Sender: FDA-Public Use
  Company Number: US-ELI_LILLY_AND_COMPANY-US200803002668

PATIENT
  Age: 63 Year
  Sex: Female

DRUGS (3)
  1. EVISTA [Suspect]
     Active Substance: RALOXIFENE HYDROCHLORIDE
     Indication: OSTEOPOROSIS
     Dosage: 60 MG, DAILY (1/D)
     Dates: start: 20080204, end: 20080311
  2. FOSAMAX [Concomitant]
     Active Substance: ALENDRONATE SODIUM
  3. CARAFATE [Concomitant]
     Active Substance: SUCRALFATE

REACTIONS (5)
  - Feeling abnormal [Not Recovered/Not Resolved]
  - Depressed mood [Not Recovered/Not Resolved]
  - Nightmare [Not Recovered/Not Resolved]
  - Influenza [Recovered/Resolved]
  - Negative thoughts [Not Recovered/Not Resolved]

NARRATIVE: CASE EVENT DATE: 20080211
